FAERS Safety Report 15597341 (Version 1)
Quarter: 2018Q4

REPORT INFORMATION
  Report Type: Report from Study
  Country: None (occurrence: US)
  Receive Date: 20181108
  Receipt Date: 20181108
  Transmission Date: 20190205
  Serious: Yes (Hospitalization, Other)
  Sender: FDA-Public Use
  Company Number: US-ABBVIE-18K-163-2538260-00

PATIENT
  Age: 93 Year
  Sex: Female
  Weight: 65.83 kg

DRUGS (18)
  1. OMEPRAZOLE. [Concomitant]
     Active Substance: OMEPRAZOLE
     Indication: GASTROOESOPHAGEAL REFLUX DISEASE
  2. MUPIROCIN. [Concomitant]
     Active Substance: MUPIROCIN
     Indication: EPISTAXIS
  3. LEVOCETIRIZINE [Concomitant]
     Active Substance: LEVOCETIRIZINE
     Indication: HYPERSENSITIVITY
  4. FOLTX [Concomitant]
     Active Substance: CYANOCOBALAMIN CO-57\FOLIC ACID\PYRIDOXINE HYDROCHLORIDE
     Indication: SUPPLEMENTATION THERAPY
  5. PRENATAL VITAMINS [Concomitant]
     Active Substance: VITAMINS
     Indication: VITAMIN SUPPLEMENTATION
  6. URSODIOL. [Concomitant]
     Active Substance: URSODIOL
     Indication: SYSTEMIC LUPUS ERYTHEMATOSUS
  7. ACIDOPHILUS [Concomitant]
     Active Substance: LACTOBACILLUS ACIDOPHILUS
     Indication: SUPPLEMENTATION THERAPY
  8. VAGIFEM [Concomitant]
     Active Substance: ESTRADIOL
     Indication: PRODUCT USED FOR UNKNOWN INDICATION
  9. PEDIALYTE [Concomitant]
     Active Substance: POTASSIUM CITRATE\SODIUM CITRATE\ZINC
     Indication: SYNCOPE
  10. SODIUM [Concomitant]
     Active Substance: SODIUM
     Indication: BLOOD SODIUM DECREASED
  11. ASTELIN [Concomitant]
     Active Substance: AZELASTINE HYDROCHLORIDE
     Indication: HYPERSENSITIVITY
  12. ASPIRIN. [Concomitant]
     Active Substance: ASPIRIN
     Indication: PROPHYLAXIS
  13. HUMIRA [Suspect]
     Active Substance: ADALIMUMAB
     Indication: RHEUMATOID ARTHRITIS
     Route: 058
     Dates: start: 2003
  14. DIAZEPAM. [Concomitant]
     Active Substance: DIAZEPAM
     Indication: MENIERE^S DISEASE
  15. NOVOLOG [Concomitant]
     Active Substance: INSULIN ASPART
     Indication: DIABETES MELLITUS
  16. AZATHIOPRINE. [Concomitant]
     Active Substance: AZATHIOPRINE
     Indication: LIVER DISORDER
  17. NUMOISYN [Concomitant]
     Indication: DRY MOUTH
     Dosage: LOZENGES
  18. TOPIRAMATE. [Concomitant]
     Active Substance: TOPIRAMATE
     Indication: PARTIAL SEIZURES

REACTIONS (12)
  - Loss of consciousness [Recovered/Resolved]
  - Ketoacidosis [Recovered/Resolved]
  - Vomiting [Recovered/Resolved]
  - Hepatic cirrhosis [Not Recovered/Not Resolved]
  - Neoplasm malignant [Recovered/Resolved]
  - Loss of personal independence in daily activities [Recovered/Resolved]
  - Hepatic cancer [Not Recovered/Not Resolved]
  - Depressed mood [Recovered/Resolved]
  - Nausea [Recovered/Resolved]
  - Partial seizures [Not Recovered/Not Resolved]
  - Depression [Recovered/Resolved]
  - Diarrhoea [Recovered/Resolved with Sequelae]

NARRATIVE: CASE EVENT DATE: 2014
